FAERS Safety Report 10280385 (Version 2)
Quarter: 2014Q3

REPORT INFORMATION
  Report Type: Spontaneous
  Country: RS (occurrence: RS)
  Receive Date: 20140707
  Receipt Date: 20140806
  Transmission Date: 20150326
  Serious: Yes (Death, Hospitalization)
  Sender: FDA-Public Use
  Company Number: RS-PFIZER INC-2014183039

PATIENT
  Age: 59 Year
  Sex: Male

DRUGS (6)
  1. SUNITINIB MALATE [Suspect]
     Active Substance: SUNITINIB MALATE
     Indication: METASTATIC RENAL CELL CARCINOMA
     Dosage: 50 MG, 1X/DAY
     Route: 048
     Dates: start: 20140613, end: 20140616
  2. MEGACE [Concomitant]
     Active Substance: MEGESTROL ACETATE
     Indication: CACHEXIA
  3. TAMSOL [Concomitant]
     Indication: BENIGN PROSTATIC HYPERPLASIA
  4. CONTROLOC [Concomitant]
     Active Substance: PANTOPRAZOLE SODIUM
  5. TRAMAFORT [Concomitant]
     Indication: PAIN
  6. AMINOFILIN R [Concomitant]
     Indication: ASTHMA

REACTIONS (1)
  - Diarrhoea [Fatal]

NARRATIVE: CASE EVENT DATE: 20140613
